APPROVED DRUG PRODUCT: ACYCLOVIR IN SODIUM CHLORIDE 0.9% PRESERVATIVE FREE
Active Ingredient: ACYCLOVIR SODIUM
Strength: EQ 1GM BASE/VIAL
Dosage Form/Route: INJECTABLE;INJECTION
Application: A074885 | Product #002
Applicant: EUROHEALTH INTERNATIONAL SARL
Approved: Dec 19, 1997 | RLD: No | RS: No | Type: DISCN